FAERS Safety Report 7085917-4 (Version None)
Quarter: 2010Q4

REPORT INFORMATION
  Report Type: 
  Country: None (occurrence: None)
  Receive Date: 20101105
  Receipt Date: 20101025
  Transmission Date: 20110411
  Serious: Yes (Hospitalization, Disabling)
  Sender: FDA-Public Use
  Company Number: GB-TEVA-252972ISR

PATIENT
  Sex: Male

DRUGS (21)
  1. PREDNISOLONE (ABIRATERONE ACETATE COMPARATOR) [Suspect]
     Indication: PROSTATE CANCER METASTATIC
     Route: 048
     Dates: start: 20080814
  2. PLACEBO [Suspect]
     Indication: PROSTATE CANCER METASTATIC
     Route: 048
     Dates: start: 20080814
  3. CITALOPRAM HYDROBROMIDE [Concomitant]
     Route: 048
     Dates: start: 20080804
  4. LEUPROLIDE ACETATE [Concomitant]
     Indication: PROSTATE CANCER
     Route: 058
     Dates: start: 20080814
  5. GABAPENTIN [Concomitant]
     Indication: CANCER PAIN
     Route: 048
     Dates: start: 20060101
  6. LANSOPRAZOLE [Concomitant]
     Indication: INFECTION PROPHYLAXIS
     Route: 048
     Dates: start: 20060101
  7. LANSOPRAZOLE [Concomitant]
     Dates: start: 20080926
  8. METOCLOPRAMIDE HYDROCHLORIDE [Concomitant]
     Indication: PROPHYLAXIS OF NAUSEA AND VOMITING
     Route: 048
     Dates: start: 20060101
  9. ACETYLSALICYLIC ACID [Concomitant]
     Indication: ANTICOAGULANT THERAPY
     Route: 048
     Dates: start: 20080301
  10. DORBANEX [Concomitant]
     Indication: CONSTIPATION
     Route: 048
     Dates: start: 20060101
  11. DORBANEX [Concomitant]
     Indication: LAXATIVE SUPPORTIVE CARE
  12. TINZAPARIN [Concomitant]
     Indication: DEEP VEIN THROMBOSIS
     Route: 058
     Dates: start: 20060101
  13. TINZAPARIN [Concomitant]
     Indication: ANTICOAGULANT THERAPY
  14. OXYCODONE HCL [Concomitant]
     Indication: CANCER PAIN
     Route: 048
     Dates: start: 20080601
  15. OXYCODONE HCL [Concomitant]
     Route: 048
     Dates: start: 20060101
  16. ATORVASTATIN CALCIUM [Concomitant]
     Indication: CARDIOVASCULAR EVENT PROPHYLAXIS
     Route: 048
     Dates: start: 20070101
  17. ENSURE PLUS [Concomitant]
     Indication: MEDICAL DIET
     Route: 048
     Dates: start: 20080901
  18. NULYTELY [Concomitant]
     Indication: CONSTIPATION
     Route: 048
     Dates: start: 20080901
  19. PARACETAMOL [Concomitant]
     Indication: CANCER PAIN
     Route: 048
     Dates: start: 20080814
  20. PARACETAMOL [Concomitant]
     Route: 048
  21. PREDNISOLONE [Concomitant]
     Indication: PROSTATE CANCER
     Route: 048
     Dates: start: 20080613

REACTIONS (2)
  - BACK PAIN [None]
  - BONE PAIN [None]
